FAERS Safety Report 4677437-9 (Version None)
Quarter: 2005Q2

REPORT INFORMATION
  Report Type: 
  Country: None (occurrence: None)
  Receive Date: 20050531
  Receipt Date: 20050524
  Transmission Date: 20051028
  Serious: Yes (Disabling)
  Sender: FDA-Public Use
  Company Number: GB-BOEHRINGER INGELHEIM PHARMACEUTICALS, INC.-2005-UK-00906UK

PATIENT
  Age: 74 Year
  Sex: Male
  Weight: 58 kg

DRUGS (3)
  1. SPIRIVA [Suspect]
     Indication: CHRONIC OBSTRUCTIVE PULMONARY DISEASE
     Route: 055
     Dates: start: 20041112, end: 20050430
  2. COMBIVENT [Concomitant]
     Indication: CHRONIC OBSTRUCTIVE PULMONARY DISEASE
     Dosage: 20/100
     Route: 055
     Dates: start: 20000101
  3. DORALESE [Concomitant]
     Indication: BENIGN PROSTATIC HYPERPLASIA
     Dosage: 20MG BD
     Route: 048
     Dates: start: 20000101

REACTIONS (3)
  - DRY SKIN [None]
  - ECZEMA [None]
  - SKIN INFLAMMATION [None]
